FAERS Safety Report 19829359 (Version 1)
Quarter: 2021Q3

REPORT INFORMATION
  Report Type: Spontaneous
  Country: US (occurrence: US)
  Receive Date: 20210914
  Receipt Date: 20210914
  Transmission Date: 20211014
  Serious: No
  Sender: FDA-Public Use
  Company Number: US-SA-2021SA301623

PATIENT
  Age: 59 Year
  Sex: Female

DRUGS (1)
  1. LANTUS [Suspect]
     Active Substance: INSULIN GLARGINE
     Indication: DIABETES MELLITUS
     Dosage: UNK
     Route: 065
     Dates: start: 2021

REACTIONS (5)
  - Abdominal hernia [Unknown]
  - Oedema peripheral [Unknown]
  - Dyspnoea [Unknown]
  - Localised oedema [Unknown]
  - Fluid retention [Unknown]

NARRATIVE: CASE EVENT DATE: 2021
